FAERS Safety Report 14540869 (Version 1)
Quarter: 2018Q1

REPORT INFORMATION
  Report Type: Spontaneous
  Country: US (occurrence: US)
  Receive Date: 20180216
  Receipt Date: 20180216
  Transmission Date: 20180509
  Serious: Yes (Life-Threatening, Disabling, Other)
  Sender: FDA-Public Use
  Company Number: US-OTSUKA-KJ20050810

PATIENT
  Age: 9 Year
  Sex: Male

DRUGS (8)
  1. CONCERTA [Concomitant]
     Active Substance: METHYLPHENIDATE HYDROCHLORIDE
     Indication: ATTENTION DEFICIT/HYPERACTIVITY DISORDER
     Dosage: 54 MG, QD
     Route: 065
     Dates: start: 200401
  2. KLONOPIN [Concomitant]
     Active Substance: CLONAZEPAM
     Indication: PRODUCT USED FOR UNKNOWN INDICATION
     Dosage: UNK
     Route: 065
  3. SEROQUEL [Concomitant]
     Active Substance: QUETIAPINE FUMARATE
     Indication: PRODUCT USED FOR UNKNOWN INDICATION
     Dosage: 200 MG, QD
     Route: 065
     Dates: end: 20050209
  4. ABILIFY [Suspect]
     Active Substance: ARIPIPRAZOLE
     Dosage: 2.5 MG, UNK
     Route: 048
     Dates: start: 20050217, end: 20050219
  5. SENOKOT [Concomitant]
     Active Substance: SENNOSIDES
     Indication: PRODUCT USED FOR UNKNOWN INDICATION
     Dosage: UNK
     Route: 065
  6. ABILIFY [Suspect]
     Active Substance: ARIPIPRAZOLE
     Indication: AGGRESSION
     Dosage: 2.5 MG, UNK
     Route: 048
     Dates: start: 20050209, end: 20050212
  7. MIRALAX [Concomitant]
     Active Substance: POLYETHYLENE GLYCOL 3350
     Indication: PRODUCT USED FOR UNKNOWN INDICATION
     Dosage: UNK
     Route: 065
  8. CLONIDINE. [Concomitant]
     Active Substance: CLONIDINE
     Indication: AGGRESSION
     Dosage: .1 MG, TID
     Route: 065
     Dates: start: 200404

REACTIONS (11)
  - Dysarthria [Recovered/Resolved]
  - Feeling abnormal [Recovered/Resolved]
  - Mydriasis [Recovered/Resolved]
  - Paranoia [Unknown]
  - Delusion [Unknown]
  - Drooling [Recovered/Resolved]
  - Pupillary reflex impaired [Recovered/Resolved]
  - Incoherent [Recovered/Resolved]
  - Vision blurred [Recovered/Resolved]
  - Dyskinesia [Recovered/Resolved]
  - Hypokinesia [Recovered/Resolved]

NARRATIVE: CASE EVENT DATE: 20050212
